FAERS Safety Report 9220558 (Version 1)
Quarter: 2013Q2

REPORT INFORMATION
  Report Type: Spontaneous
  Country: US (occurrence: US)
  Receive Date: 20130409
  Receipt Date: 20130409
  Transmission Date: 20140414
  Serious: No
  Sender: FDA-Public Use
  Company Number: US-UPSHER-SMITH LABORATORIES, INC.-12000482

PATIENT
  Age: 83 Year
  Sex: Female

DRUGS (6)
  1. PREVALITE [Suspect]
     Indication: BLOOD TRIGLYCERIDES INCREASED
     Dosage: 4 G, QD
     Route: 048
     Dates: start: 20120405, end: 20120426
  2. PRILOSEC                           /00661201/ [Concomitant]
     Dosage: UNK
  3. SYNTHROID [Concomitant]
     Dosage: UNK
  4. TENORMIN [Concomitant]
     Dosage: UNK
  5. ASPIRIN [Concomitant]
     Dosage: UNK
  6. FISH OIL [Concomitant]
     Dosage: UNK

REACTIONS (2)
  - Gastrointestinal tract irritation [Not Recovered/Not Resolved]
  - Haemorrhoids [Recovering/Resolving]
